FAERS Safety Report 6927769-6 (Version None)
Quarter: 2010Q3

REPORT INFORMATION
  Report Type: 
  Country: None (occurrence: None)
  Receive Date: 20100816
  Receipt Date: 20100816
  Transmission Date: 20110219
  Serious: Yes (Death, Hospitalization)
  Sender: FDA-Public Use
  Company Number: None

PATIENT
  Age: 64 Year
  Sex: Male

DRUGS (2)
  1. CETUXIMAB 250MG/M2 [Suspect]
     Indication: NON-SMALL CELL LUNG CANCER
     Dosage: CETUXIMAB 250MG/M2 IV
     Route: 042
     Dates: start: 20100802, end: 20100802
  2. ERLOTINB 150MG/TAB 150/TAB [Suspect]
     Indication: NON-SMALL CELL LUNG CANCER
     Dosage: ERLOTINB 150MG PO
     Route: 048
     Dates: start: 20100802, end: 20100804

REACTIONS (3)
  - DYSPNOEA [None]
  - FATIGUE [None]
  - RESPIRATORY FAILURE [None]
